FAERS Safety Report 13298602 (Version 2)
Quarter: 2018Q1

REPORT INFORMATION
  Report Type: Spontaneous
  Country: US (occurrence: US)
  Receive Date: 20170306
  Receipt Date: 20180227
  Transmission Date: 20180508
  Serious: No
  Sender: FDA-Public Use
  Company Number: US-BIOGEN-2017BI00360997

PATIENT
  Sex: Female

DRUGS (1)
  1. TECFIDERA [Suspect]
     Active Substance: DIMETHYL FUMARATE
     Indication: MULTIPLE SCLEROSIS
     Route: 048
     Dates: start: 20140624

REACTIONS (14)
  - Musculoskeletal disorder [Unknown]
  - Vision blurred [Unknown]
  - Balance disorder [Unknown]
  - Hypoaesthesia [Unknown]
  - Gait disturbance [Unknown]
  - Photopsia [Unknown]
  - Dizziness [Unknown]
  - Diplopia [Unknown]
  - Nausea [Recovered/Resolved]
  - Multiple sclerosis relapse [Unknown]
  - Decreased appetite [Unknown]
  - Feeding disorder [Unknown]
  - Abdominal discomfort [Unknown]
  - Fall [Recovered/Resolved]
